FAERS Safety Report 9712653 (Version 2)
Quarter: 2014Q1

REPORT INFORMATION
  Report Type: Spontaneous
  Country: US (occurrence: US)
  Receive Date: 20131126
  Receipt Date: 20140217
  Transmission Date: 20141002
  Serious: Yes (Hospitalization)
  Sender: FDA-Public Use
  Company Number: PHEH2013US024689

PATIENT
  Sex: Female

DRUGS (4)
  1. TEKTURNA [Suspect]
     Dosage: UNK (150MG), UNK
  2. METOPROLOL [Suspect]
     Dosage: UNK UKN, UNK
  3. NORVASC [Suspect]
     Dosage: UNK UKN, UNK
  4. NORVASC [Suspect]
     Dosage: 2 UNK, UNK

REACTIONS (6)
  - Chest pain [Unknown]
  - Asthma [Unknown]
  - Dyspnoea [Unknown]
  - Wheezing [Unknown]
  - Cough [Unknown]
  - Blood pressure abnormal [Unknown]
